FAERS Safety Report 4549141-9 (Version None)
Quarter: 2004Q4

REPORT INFORMATION
  Report Type: 
  Country: None (occurrence: None)
  Receive Date: 20041227
  Receipt Date: 20041109
  Transmission Date: 20050328
  Serious: No
  Sender: FDA-Public Use
  Company Number: 04P-163-0280259-00

PATIENT
  Age: 52 Year
  Sex: Female
  Weight: 78.4723 kg

DRUGS (8)
  1. HUMIRA [Suspect]
     Indication: RHEUMATOID ARTHRITIS
     Dosage: 40 MG, 1 IN 2 WK, SUBCUTANEOUS
     Route: 058
     Dates: start: 20040719
  2. PREDNISONE [Concomitant]
  3. HYZAAR [Concomitant]
  4. FEXOFENADINE HYDROCHLORIDE [Concomitant]
  5. ATENOLOL [Concomitant]
  6. FOLTZ [Concomitant]
  7. CALCIUM CARBONATE [Concomitant]
  8. OMEGA 3 COMPLEX [Concomitant]

REACTIONS (1)
  - WEIGHT INCREASED [None]
